FAERS Safety Report 9183892 (Version 14)
Quarter: 2014Q1

REPORT INFORMATION
  Report Type: Report from Study
  Country: AU (occurrence: AU)
  Receive Date: 20130322
  Receipt Date: 20140224
  Transmission Date: 20141002
  Serious: Yes (Hospitalization)
  Sender: FDA-Public Use
  Company Number: PHHO2013AU004197

PATIENT
  Age: 66 Year
  Sex: Male
  Weight: 105.1 kg

DRUGS (18)
  1. AMN107 [Suspect]
     Indication: CHRONIC MYELOID LEUKAEMIA
     Dosage: 300 MG, BID
     Route: 048
     Dates: start: 20120301, end: 20130603
  2. AMN107 [Suspect]
     Dosage: 300 MG, BID
     Route: 048
     Dates: start: 20130619
  3. PLAVIX [Concomitant]
     Indication: CORONARY ARTERY DISEASE
     Dosage: 75 MG, UNK
  4. NOTEN [Concomitant]
     Indication: HYPERTENSION
     Dosage: 50 MG, UNK
  5. IMDUR [Concomitant]
     Indication: CORONARY ARTERY DISEASE
     Dosage: 60 MG, UNK
  6. IKOREL [Concomitant]
     Indication: CORONARY ARTERY DISEASE
     Dosage: 15 MG, UNK
  7. NITROLINGUAL [Concomitant]
     Indication: CORONARY ARTERY DISEASE
     Dosage: (PUMP SPRAY) PRN
  8. SOMAC [Concomitant]
     Dosage: 40 MG, BID
  9. DIAFORMIN [Concomitant]
     Dosage: 1000 MG, BID
  10. ALLOPURINOL [Concomitant]
     Dosage: 100 MG, QD
  11. LANTUS [Concomitant]
     Dosage: 22 U, QD (NOCTE)
  12. SPIRIVA [Concomitant]
     Dosage: UNK
  13. SERETIDE [Concomitant]
     Dosage: UNK
  14. LIPITOR [Concomitant]
     Dosage: 20 MG, QD
  15. ANTIHYPERTENSIVES [Concomitant]
     Dosage: UNK
  16. DIAMICRON [Concomitant]
  17. PARIET [Concomitant]
     Indication: REFLUX GASTRITIS
     Dosage: 20 MG, QD
     Dates: end: 20130120
  18. PARIET [Concomitant]
     Dosage: 20 MG, BID
     Dates: start: 20130120

REACTIONS (1)
  - Angina pectoris [Recovered/Resolved]
